FAERS Safety Report 17327142 (Version 1)
Quarter: 2020Q1

REPORT INFORMATION
  Report Type: Spontaneous
  Country: US (occurrence: US)
  Receive Date: 20200127
  Receipt Date: 20200127
  Transmission Date: 20200409
  Serious: Yes (Hospitalization, Other)
  Sender: FDA-Public Use
  Company Number: US-GALDERMA-US2020003635

PATIENT
  Age: 60 Year
  Sex: Male

DRUGS (2)
  1. GENTAMICIN. [Concomitant]
     Active Substance: GENTAMICIN
     Indication: TULARAEMIA
     Route: 042
  2. DOXYCYCLINE (DOXYCYCLINE) CAPSULES, 40 MG [Suspect]
     Active Substance: DOXYCYCLINE
     Indication: TULARAEMIA
     Dosage: PRESCRIBED 20 DAY COURSE
     Route: 065

REACTIONS (11)
  - VIth nerve paralysis [Recovering/Resolving]
  - Mydriasis [Recovering/Resolving]
  - Cough [Unknown]
  - Retching [Unknown]
  - Facial paresis [Recovering/Resolving]
  - Intentional product use issue [Recovered/Resolved]
  - Pupillary reflex impaired [Recovering/Resolving]
  - Conjunctivitis [Unknown]
  - Gaze palsy [Recovering/Resolving]
  - Renal impairment [Unknown]
  - Dysarthria [Recovering/Resolving]
